FAERS Safety Report 6729803-5 (Version None)
Quarter: 2010Q2

REPORT INFORMATION
  Report Type: 
  Country: None (occurrence: None)
  Receive Date: 20100518
  Receipt Date: 20100511
  Transmission Date: 20101027
  Serious: Yes (Other)
  Sender: FDA-Public Use
  Company Number: GB-PFIZER INC-2010058827

PATIENT
  Age: 58 Year
  Sex: Female

DRUGS (3)
  1. CELEBREX [Suspect]
     Indication: EXOSTOSIS
     Dosage: UNK
     Route: 048
     Dates: start: 20100426, end: 20100427
  2. DICLOFENAC [Suspect]
     Indication: EXOSTOSIS
     Dosage: UNK
     Route: 048
     Dates: start: 20100420, end: 20100421
  3. MICRONOR [Concomitant]
     Indication: CONTRACEPTION
     Dosage: 350 UG, UNK
     Route: 048
     Dates: start: 20100420

REACTIONS (2)
  - ARTHRALGIA [None]
  - MOUTH ULCERATION [None]
